FAERS Safety Report 6105534-X (Version None)
Quarter: 2009Q1

REPORT INFORMATION
  Report Type: 
  Country: None (occurrence: None)
  Receive Date: 20090306
  Receipt Date: 20090225
  Transmission Date: 20090719
  Serious: Yes (Other)
  Sender: FDA-Public Use
  Company Number: B0561762A

PATIENT
  Age: 60 Year
  Sex: Female

DRUGS (1)
  1. NARAMIG [Suspect]
     Indication: MIGRAINE
     Dosage: 3TAB PER DAY
     Route: 048

REACTIONS (1)
  - DRUG ABUSE [None]
